FAERS Safety Report 21585751 (Version 3)
Quarter: 2023Q1

REPORT INFORMATION
  Report Type: Report from Study
  Country: FR (occurrence: FR)
  Receive Date: 20221111
  Receipt Date: 20230111
  Transmission Date: 20230417
  Serious: Yes (Hospitalization)
  Sender: FDA-Public Use
  Company Number: FR-JNJFOC-20220853344

PATIENT
  Age: 76 Year
  Sex: Female
  Weight: 57 kg

DRUGS (1)
  1. TECLISTAMAB [Suspect]
     Active Substance: TECLISTAMAB
     Indication: Plasma cell myeloma refractory
     Dosage: MEDICATION KIT NUMBER-4383107
     Route: 058
     Dates: start: 20210105, end: 20220802

REACTIONS (1)
  - Morganella infection [Recovered/Resolved]

NARRATIVE: CASE EVENT DATE: 20220803
